FAERS Safety Report 9757900 (Version 4)
Quarter: 2014Q1

REPORT INFORMATION
  Report Type: Spontaneous
  Country: IT (occurrence: IT)
  Receive Date: 20131216
  Receipt Date: 20140220
  Transmission Date: 20141002
  Serious: Yes (Hospitalization, Other)
  Sender: FDA-Public Use
  Company Number: IT-009507513-1312ITA004855

PATIENT
  Age: 59 Year
  Sex: Female

DRUGS (4)
  1. MIRTAZAPINE [Suspect]
     Indication: MAJOR DEPRESSION
     Dosage: UNK
     Route: 048
     Dates: start: 20131001, end: 20131023
  2. MIRTAZAPINE [Suspect]
     Indication: SELF INJURIOUS BEHAVIOUR
     Dosage: UNSPECIFIED AMOUNT,INCONGRUOUS DOSE
     Route: 048
     Dates: start: 20131024, end: 20131024
  3. CITALOPRAM [Suspect]
     Indication: MAJOR DEPRESSION
     Dosage: UNK
     Route: 048
     Dates: start: 20131001, end: 20131023
  4. CITALOPRAM [Suspect]
     Indication: SELF INJURIOUS BEHAVIOUR
     Dosage: UNSPECIFIED AMOUNT,INCONGRUOUS DOSE
     Route: 048
     Dates: start: 20131024, end: 20131024

REACTIONS (2)
  - Coma [Recovered/Resolved]
  - Drug abuse [Recovered/Resolved]
